FAERS Safety Report 25025491 (Version 1)
Quarter: 2025Q1

REPORT INFORMATION
  Report Type: Spontaneous
  Country: FR (occurrence: FR)
  Receive Date: 20250228
  Receipt Date: 20250228
  Transmission Date: 20250409
  Serious: Yes (Hospitalization, Other)
  Sender: ELI LILLY AND COMPANY
  Company Number: None

PATIENT
  Age: 53 Year
  Sex: Female

DRUGS (3)
  1. PEMETREXED [Suspect]
     Active Substance: PEMETREXED
     Indication: Lung neoplasm malignant
     Route: 042
     Dates: start: 20241209, end: 20241209
  2. AMIVANTAMAB [Suspect]
     Active Substance: AMIVANTAMAB
     Indication: Lung neoplasm malignant
     Route: 042
     Dates: start: 20241209, end: 20241209
  3. CARBOPLATIN [Suspect]
     Active Substance: CARBOPLATIN
     Indication: Lung neoplasm malignant
     Route: 042
     Dates: start: 20241209, end: 20241209

REACTIONS (3)
  - Cholestasis [Not Recovered/Not Resolved]
  - Infusion related reaction [Recovered/Resolved]
  - Stomatitis [Recovering/Resolving]

NARRATIVE: CASE EVENT DATE: 20241209
